FAERS Safety Report 8959678 (Version 5)
Quarter: 2013Q4

REPORT INFORMATION
  Report Type: Report from Study
  Country: NL (occurrence: NL)
  Receive Date: 20121211
  Receipt Date: 20131223
  Transmission Date: 20140711
  Serious: Yes (Congenital Anomaly, Other)
  Sender: FDA-Public Use
  Company Number: NL-GILEAD-2012-0065818

PATIENT
  Age: 0 Day
  Sex: Male

DRUGS (2)
  1. TENOFOVIR DISOPROXIL FUMARATE [Suspect]
     Indication: CHRONIC HEPATITIS B
     Dosage: 300 MG, QD
     Route: 050
  2. ADEFOVIR DIPIVOXIL [Suspect]
     Indication: CHRONIC HEPATITIS B
     Dosage: 10 MG, QD
     Route: 050

REACTIONS (1)
  - Ventricular septal defect [Recovered/Resolved]
